FAERS Safety Report 4790896-6 (Version None)
Quarter: 2005Q3

REPORT INFORMATION
  Report Type: 
  Country: None (occurrence: None)
  Receive Date: 20050914
  Receipt Date: 20041209
  Transmission Date: 20060218
  Serious: Yes (Hospitalization, Other)
  Sender: FDA-Public Use
  Company Number: 163-20785-04120328

PATIENT
  Age: 14 Year
  Sex: Male

DRUGS (5)
  1. THALOMID [Suspect]
     Indication: JUVENILE ARTHRITIS
     Dosage: 100 MG, DAILY, ORAL
     Route: 048
     Dates: start: 20040801
  2. CELLCEPT [Concomitant]
  3. KINERET [Concomitant]
  4. PREDNISONE [Concomitant]
  5. HUMIRA [Concomitant]

REACTIONS (1)
  - GRAND MAL CONVULSION [None]
